FAERS Safety Report 17184979 (Version 1)
Quarter: 2019Q4

REPORT INFORMATION
  Report Type: Spontaneous
  Country: US (occurrence: US)
  Receive Date: 20191219
  Receipt Date: 20191219
  Transmission Date: 20200122
  Serious: Yes (Life-Threatening)
  Sender: FDA-Public Use
  Company Number: None

PATIENT
  Age: 35 Year
  Sex: Male
  Weight: 73 kg

DRUGS (8)
  1. FENTANYL IV 200 MCG [Concomitant]
     Dates: start: 20191212, end: 20191212
  2. PROPOFOL IV 160 MG [Concomitant]
     Dates: start: 20191212, end: 20191212
  3. LIDOCAINE IV, INTRATRACH [Concomitant]
     Dates: start: 20191212, end: 20191212
  4. DEXAMETHASONE IV 8 MG [Concomitant]
     Dates: start: 20191212, end: 20191212
  5. SUGAMMADEX [Suspect]
     Active Substance: SUGAMMADEX
     Indication: NEUROMUSCULAR BLOCKADE REVERSAL
     Dates: start: 20191212, end: 20191212
  6. MORPHINE IV 4 MG [Concomitant]
     Dates: start: 20191212, end: 20191212
  7. UNASYN IV 3 G [Concomitant]
     Dates: start: 20191212, end: 20191212
  8. ONDANSETRON IV 4 MG [Concomitant]
     Dates: start: 20191212, end: 20191212

REACTIONS (1)
  - Anaphylactic shock [None]

NARRATIVE: CASE EVENT DATE: 20191212
